FAERS Safety Report 24907931 (Version 1)
Quarter: 2025Q1

REPORT INFORMATION
  Report Type: Spontaneous
  Country: US (occurrence: US)
  Receive Date: 20250131
  Receipt Date: 20250131
  Transmission Date: 20250408
  Serious: No
  Sender: TEVA
  Company Number: US-TEVA-VS-3264621

PATIENT
  Sex: Female

DRUGS (2)
  1. ADDERALL [Suspect]
     Active Substance: AMPHETAMINE ASPARTATE\AMPHETAMINE SULFATE\DEXTROAMPHETAMINE SACCHARATE\DEXTROAMPHETAMINE SULFATE
     Indication: Attention deficit hyperactivity disorder
     Route: 065
     Dates: start: 202406
  2. ADDERALL [Suspect]
     Active Substance: AMPHETAMINE ASPARTATE\AMPHETAMINE SULFATE\DEXTROAMPHETAMINE SACCHARATE\DEXTROAMPHETAMINE SULFATE
     Indication: Attention deficit hyperactivity disorder
     Route: 065
     Dates: end: 202307

REACTIONS (6)
  - Brain fog [Unknown]
  - Drug ineffective for unapproved indication [Unknown]
  - Maternal exposure during pregnancy [Unknown]
  - Flat affect [Unknown]
  - Suspected product quality issue [Unknown]
  - Off label use [Unknown]

NARRATIVE: CASE EVENT DATE: 20240101
